FAERS Safety Report 9364482 (Version 1)
Quarter: 2013Q2

REPORT INFORMATION
  Report Type: Spontaneous
  Country: ES (occurrence: None)
  Receive Date: 20130619
  Receipt Date: 20130619
  Transmission Date: 20140414
  Serious: No
  Sender: FDA-Public Use
  Company Number: SYM-2013-04923

PATIENT
  Age: 77 Year
  Sex: Male

DRUGS (6)
  1. CICLOCHEM [Suspect]
     Indication: DERMATITIS
     Dosage: 3GM, 2 IN 1 D, TOPICAL
     Dates: start: 20090316, end: 200903
  2. ACENOCOUMAROL [Suspect]
     Indication: PRODUCT USED FOR UNKNOWN INDICATION
     Route: 048
     Dates: start: 2007
  3. BISOPROLOL (BISOPROLOL) (BISOPROLOL) [Concomitant]
  4. DIGOXIN (DIGOXIN) (DIGOXIN) [Concomitant]
  5. SERTRALINE (SERTRALINE) (SERTRALINE) [Concomitant]
  6. OMEPRAZOLE (OMEPRAZOLE) (OMEPRAZOLE) [Concomitant]

REACTIONS (2)
  - International normalised ratio increased [None]
  - Drug interaction [None]
